FAERS Safety Report 18228606 (Version 1)
Quarter: 2020Q3

REPORT INFORMATION
  Report Type: Spontaneous
  Country: US (occurrence: US)
  Receive Date: 20200903
  Receipt Date: 20200903
  Transmission Date: 20201103
  Serious: Yes (Other)
  Sender: FDA-Public Use
  Company Number: US-PURDUE-USA-2020-0164225

PATIENT
  Sex: Female

DRUGS (1)
  1. OXYCONTIN [Suspect]
     Active Substance: OXYCODONE HYDROCHLORIDE
     Indication: PAIN
     Dosage: UNK
     Route: 048

REACTIONS (12)
  - Anxiety [Unknown]
  - Drug dependence [Unknown]
  - Muscle spasms [Unknown]
  - Thinking abnormal [Unknown]
  - Pain [Unknown]
  - Depression [Unknown]
  - Rectal haemorrhage [Unknown]
  - Myalgia [Unknown]
  - Gastrointestinal hypomotility [Unknown]
  - Pyrexia [Unknown]
  - Chills [Unknown]
  - Insomnia [Unknown]
